FAERS Safety Report 14190577 (Version 1)
Quarter: 2017Q4

REPORT INFORMATION
  Report Type: Spontaneous
  Country: US (occurrence: US)
  Receive Date: 20171114
  Receipt Date: 20171114
  Transmission Date: 20180321
  Serious: No
  Sender: FDA-Public Use
  Company Number: None

PATIENT
  Age: 59 Year
  Sex: Male
  Weight: 132 kg

DRUGS (6)
  1. METOPROLOL SUCCINATE. [Concomitant]
     Active Substance: METOPROLOL SUCCINATE
  2. CARBOXYMETHYCELLULOSE NA [Concomitant]
  3. CHLORTHALIDONE. [Suspect]
     Active Substance: CHLORTHALIDONE
     Indication: HYPERTENSION
     Route: 048
     Dates: start: 20171024, end: 20171030
  4. FOSINOPRIL(EXALON) [Concomitant]
  5. NIFEDIPINE SA [Concomitant]
  6. ASPIRIN. [Concomitant]
     Active Substance: ASPIRIN

REACTIONS (8)
  - Headache [None]
  - Palpitations [None]
  - Paraesthesia [None]
  - Oedema peripheral [None]
  - Hypokalaemia [None]
  - Dry mouth [None]
  - Dizziness [None]
  - Chest discomfort [None]

NARRATIVE: CASE EVENT DATE: 20171030
